FAERS Safety Report 7416458-X (Version None)
Quarter: 2011Q2

REPORT INFORMATION
  Report Type: 
  Country: None (occurrence: None)
  Receive Date: 20110414
  Receipt Date: 20110406
  Transmission Date: 20111010
  Serious: Yes (Death)
  Sender: FDA-Public Use
  Company Number: JP-GENENTECH-316283

PATIENT
  Sex: Male

DRUGS (5)
  1. RITUXAN [Suspect]
     Indication: NON-HODGKIN'S LYMPHOMA
     Dosage: 590 MG, X4
     Route: 042
     Dates: start: 20081023, end: 20090119
  2. ADRIACIN [Suspect]
     Indication: NON-HODGKIN'S LYMPHOMA
     Dosage: 63 MG, UNKNOWN
     Route: 042
     Dates: start: 20081024, end: 20090120
  3. ONCOVIN [Suspect]
     Indication: NON-HODGKIN'S LYMPHOMA
     Dosage: 1.6 MG, UNKNOWN
     Route: 042
     Dates: start: 20081024, end: 20090120
  4. ENDOXAN [Suspect]
     Indication: NON-HODGKIN'S LYMPHOMA
     Dosage: 1025 MG, UNKNOWN
     Route: 042
     Dates: start: 20081024, end: 20090120
  5. PREDNISOLONE [Suspect]
     Indication: NON-HODGKIN'S LYMPHOMA
     Dosage: 40 MG, UNKNOWN
     Route: 042
     Dates: start: 20081024, end: 20090120

REACTIONS (1)
  - PYLORIC STENOSIS [None]
